FAERS Safety Report 5900145-0 (Version None)
Quarter: 2008Q3

REPORT INFORMATION
  Report Type: 
  Country: None (occurrence: None)
  Receive Date: 20080926
  Receipt Date: 20080924
  Transmission Date: 20090109
  Serious: Yes (Disabling)
  Sender: FDA-Public Use
  Company Number: DE-MERCK-0808DEU00109

PATIENT
  Age: 53 Year
  Sex: Male

DRUGS (2)
  1. VYTORIN [Suspect]
     Indication: TYPE IIA HYPERLIPIDAEMIA
     Route: 048
     Dates: end: 20080801
  2. VYTORIN [Suspect]
     Route: 048
     Dates: start: 20080410

REACTIONS (2)
  - PEYRONIE'S DISEASE [None]
  - SEXUAL DYSFUNCTION [None]
